FAERS Safety Report 5535046-3 (Version None)
Quarter: 2007Q4

REPORT INFORMATION
  Report Type: 
  Country: None (occurrence: None)
  Receive Date: 20071203
  Receipt Date: 20071116
  Transmission Date: 20080405
  Serious: No
  Sender: FDA-Public Use
  Company Number: 2007BI020205

PATIENT
  Age: 53 Year
  Sex: Male

DRUGS (2)
  1. NATALIZUMAB [Suspect]
     Indication: MULTIPLE SCLEROSIS
     Dosage: 300 MG;QM;IV
     Route: 042
     Dates: start: 20070507, end: 20070731
  2. AVONEX [Concomitant]

REACTIONS (5)
  - BLOOD PRESSURE FLUCTUATION [None]
  - EPISTAXIS [None]
  - INFUSION RELATED REACTION [None]
  - NAUSEA [None]
  - VOMITING [None]
